FAERS Safety Report 21414484 (Version 1)
Quarter: 2022Q4

REPORT INFORMATION
  Report Type: Spontaneous
  Country: US (occurrence: US)
  Receive Date: 20221006
  Receipt Date: 20221006
  Transmission Date: 20230112
  Serious: No
  Sender: FDA-Public Use
  Company Number: US-ALLERGAN-2228203US

PATIENT
  Age: 65 Year
  Sex: Female

DRUGS (2)
  1. QULIPTA [Suspect]
     Active Substance: ATOGEPANT
     Indication: Product used for unknown indication
     Dosage: UNK
     Dates: start: 20220825
  2. QULIPTA [Suspect]
     Active Substance: ATOGEPANT
     Dosage: UNK
     Dates: start: 202208, end: 202208

REACTIONS (2)
  - Muscle spasms [Recovering/Resolving]
  - Headache [Recovered/Resolved]

NARRATIVE: CASE EVENT DATE: 20220801
